FAERS Safety Report 5578609-1 (Version None)
Quarter: 2008Q1

REPORT INFORMATION
  Report Type: 
  Country: None (occurrence: None)
  Receive Date: 20080101
  Receipt Date: 20071218
  Transmission Date: 20080703
  Serious: Yes (Hospitalization, Other)
  Sender: FDA-Public Use
  Company Number: GB-ELI_LILLY_AND_COMPANY-GB200712003792

PATIENT
  Sex: Female

DRUGS (4)
  1. ZYPREXA [Suspect]
     Dosage: 5 MG, DAILY (1/D)
     Route: 065
     Dates: start: 20071205, end: 20071205
  2. ZYPREXA [Suspect]
     Dosage: 5 MG, 2/D
     Dates: start: 20071206
  3. CLOMIPRAMINE HCL [Concomitant]
     Dosage: UNK, UNKNOWN
  4. LANSOPRAZOLE [Concomitant]
     Dosage: UNK, UNKNOWN

REACTIONS (1)
  - EMBOLISM [None]
